FAERS Safety Report 24859130 (Version 1)
Quarter: 2025Q1

REPORT INFORMATION
  Report Type: Spontaneous
  Country: GB (occurrence: GB)
  Receive Date: 20250118
  Receipt Date: 20250118
  Transmission Date: 20250409
  Serious: Yes (Other)
  Sender: ACCORD
  Company Number: None

PATIENT
  Age: 68 Year
  Sex: Female
  Weight: 92 kg

DRUGS (9)
  1. QUETIAPINE FUMARATE [Suspect]
     Active Substance: QUETIAPINE FUMARATE
     Indication: Product used for unknown indication
     Dosage: ONE TO BE TAKEN DAILY AT NIGHT
     Dates: start: 20240622
  2. SERTRALINE [Concomitant]
     Active Substance: SERTRALINE HYDROCHLORIDE
     Dosage: ONE TABLET ONCEDAILY , AS ADVISED BY SPECIALIST
     Dates: start: 20240622
  3. DOMPERIDONE [Concomitant]
     Active Substance: DOMPERIDONE
     Dosage: ONE TABLET THREE TIMES DAILY
     Dates: start: 20241021, end: 20241031
  4. OMEPRAZOLE [Concomitant]
     Active Substance: OMEPRAZOLE
     Indication: Ill-defined disorder
     Dates: start: 20241209, end: 20250106
  5. CYCLIZINE [Concomitant]
     Active Substance: CYCLIZINE
     Dates: start: 20241210
  6. LANSOPRAZOLE [Concomitant]
     Active Substance: LANSOPRAZOLE
     Dosage: TAKE ONE ONCE DAILY
  7. NYSTATIN [Concomitant]
     Active Substance: NYSTATIN
     Dosage: 4 TIMES A DAY  1ML  AFTER FOOD
  8. ATORVASTATIN [Concomitant]
     Active Substance: ATORVASTATIN
     Dosage: TAKE ONE DAILY
     Dates: start: 20240622
  9. FOLIC ACID [Concomitant]
     Active Substance: FOLIC ACID
     Dosage: TAKE ONE DAILY
     Dates: start: 20240622

REACTIONS (1)
  - Hallucination [Recovered/Resolved]
